FAERS Safety Report 6315149-6 (Version None)
Quarter: 2009Q3

REPORT INFORMATION
  Report Type: 
  Country: None (occurrence: None)
  Receive Date: 20090817
  Receipt Date: 20090801
  Transmission Date: 20100115
  Serious: Yes (Other)
  Sender: FDA-Public Use
  Company Number: ENT 2009-0127

PATIENT
  Age: 91 Year
  Sex: Male

DRUGS (1)
  1. COMTAN [Suspect]
     Indication: DEMENTIA ALZHEIMER'S TYPE
     Dosage: 200 MG
     Dates: start: 20081101

REACTIONS (1)
  - ABNORMAL BEHAVIOUR [None]
